FAERS Safety Report 6405698-4 (Version None)
Quarter: 2009Q4

REPORT INFORMATION
  Report Type: 
  Country: None (occurrence: None)
  Receive Date: 20091019
  Receipt Date: 20091007
  Transmission Date: 20100525
  Serious: Yes (Hospitalization)
  Sender: FDA-Public Use
  Company Number: FR-ELI_LILLY_AND_COMPANY-FR200910001774

PATIENT
  Sex: Male
  Weight: 66 kg

DRUGS (5)
  1. PEMETREXED [Suspect]
     Indication: MESOTHELIOMA
     Dosage: 880 MG, UNK
     Route: 042
     Dates: start: 20081204
  2. CISPLATIN [Suspect]
     Indication: MESOTHELIOMA
     Dosage: 75 MG, UNK
     Route: 042
     Dates: start: 20081204
  3. FOLIC ACID [Concomitant]
     Indication: VITAMIN SUPPLEMENTATION
  4. VITAMIN B-12 [Concomitant]
     Indication: VITAMIN SUPPLEMENTATION
  5. DEXAMETHASONE [Concomitant]
     Indication: PROPHYLAXIS

REACTIONS (5)
  - GENERAL PHYSICAL HEALTH DETERIORATION [None]
  - HYPERHIDROSIS [None]
  - HYPOTENSION [None]
  - PYREXIA [None]
  - RESPIRATORY TRACT CONGESTION [None]
